FAERS Safety Report 24585810 (Version 1)
Quarter: 2024Q4

REPORT INFORMATION
  Report Type: Spontaneous
  Country: CN (occurrence: CN)
  Receive Date: 20241106
  Receipt Date: 20241106
  Transmission Date: 20250115
  Serious: Yes (Other)
  Sender: NOVARTIS
  Company Number: CN-002147023-NVSC2024CN212561

PATIENT
  Age: 54 Year
  Sex: Female

DRUGS (1)
  1. SACUBITRIL\VALSARTAN [Suspect]
     Active Substance: SACUBITRIL\VALSARTAN
     Indication: Blood pressure increased
     Dosage: 100 MG, BID
     Route: 048
     Dates: start: 20241009, end: 20241014

REACTIONS (5)
  - Syncope [Recovering/Resolving]
  - Amaurosis [Recovering/Resolving]
  - Hypotension [Recovering/Resolving]
  - Fibrin D dimer increased [Recovering/Resolving]
  - Fibrinogen degradation products increased [Recovering/Resolving]

NARRATIVE: CASE EVENT DATE: 20241014
